FAERS Safety Report 15893982 (Version 1)
Quarter: 2019Q1

REPORT INFORMATION
  Report Type: Spontaneous
  Country: US (occurrence: US)
  Receive Date: 20190131
  Receipt Date: 20190131
  Transmission Date: 20190417
  Serious: Yes (Hospitalization)
  Sender: FDA-Public Use
  Company Number: US-STRIDES ARCOLAB LIMITED-2019SP000865

PATIENT
  Age: 52 Year
  Sex: Female

DRUGS (2)
  1. PHYTONADIONE. [Suspect]
     Active Substance: PHYTONADIONE
     Indication: INTERNATIONAL NORMALISED RATIO INCREASED
     Dosage: 10 MG, UNKNOWN
     Route: 042
  2. MACROGOL, SODIUM CHLORIDE, POTASSIUM CHLORIDE, SODIUM BICARBONATE [Suspect]
     Active Substance: POLYETHYLENE GLYCOL 3350\POTASSIUM CHLORIDE\SODIUM BICARBONATE\SODIUM CHLORIDE
     Indication: PRODUCT USED FOR UNKNOWN INDICATION
     Dosage: UNK
     Route: 065

REACTIONS (4)
  - Therapeutic product cross-reactivity [Unknown]
  - Erythema [Recovered/Resolved]
  - Hypotension [Recovered/Resolved]
  - Anaphylactoid reaction [Recovered/Resolved]
